FAERS Safety Report 10501637 (Version 1)
Quarter: 2014Q4

REPORT INFORMATION
  Report Type: Spontaneous
  Country: US (occurrence: None)
  Receive Date: 20141006
  Receipt Date: 20141006
  Transmission Date: 20150528
  Serious: Yes (Hospitalization, Other)
  Sender: FDA-Public Use
  Company Number: None

PATIENT
  Age: 39 Year
  Sex: Female
  Weight: 150 kg

DRUGS (1)
  1. MIRENA [Suspect]
     Active Substance: LEVONORGESTREL

REACTIONS (6)
  - Abdominal pain [None]
  - Pregnancy with contraceptive device [None]
  - Haemorrhage [None]
  - Exposure during pregnancy [None]
  - Tubal rupture [None]
  - Ectopic pregnancy [None]

NARRATIVE: CASE EVENT DATE: 20141002
